FAERS Safety Report 7438012-6 (Version None)
Quarter: 2011Q2

REPORT INFORMATION
  Report Type: 
  Country: None (occurrence: None)
  Receive Date: 20110426
  Receipt Date: 20100623
  Transmission Date: 20111010
  Serious: No
  Sender: FDA-Public Use
  Company Number: US-MYLANLABS-2010S1011360

PATIENT
  Age: 78 Year
  Sex: Male

DRUGS (7)
  1. NITROFURANTOIN (MONOHYDRATE/MACROCRYSTALS) [Suspect]
     Route: 048
     Dates: start: 20100622, end: 20100623
  2. ANTIHYPERTENSIVES [Concomitant]
     Indication: BLOOD PRESSURE INCREASED
  3. NITROFURANTOIN (MONOHYDRATE/MACROCRYSTALS) [Suspect]
     Route: 048
     Dates: start: 20100621, end: 20100621
  4. ZOCOR [Concomitant]
     Indication: BLOOD CHOLESTEROL INCREASED
  5. COUMADIN [Concomitant]
  6. NITROFURANTOIN (MONOHYDRATE/MACROCRYSTALS) [Suspect]
     Indication: URINARY TRACT INFECTION
     Route: 048
     Dates: start: 20100616, end: 20100620
  7. LASIX [Concomitant]

REACTIONS (3)
  - BLISTER [None]
  - ERYTHEMA [None]
  - RASH [None]
